FAERS Safety Report 11112232 (Version 4)
Quarter: 2015Q2

REPORT INFORMATION
  Report Type: Spontaneous
  Country: US (occurrence: None)
  Receive Date: 20150512
  Receipt Date: 20150526
  Transmission Date: 20150821
  Serious: Yes (Hospitalization, Other)
  Sender: FDA-Public Use
  Company Number: ADR-2015-00916

PATIENT
  Age: 61 Year
  Sex: Female

DRUGS (3)
  1. BACLOFEN. [Suspect]
     Active Substance: BACLOFEN
     Indication: MUSCLE SPASTICITY
  2. STEROIDS [Suspect]
     Active Substance: UNSPECIFIED INGREDIENT
  3. IVIG (INTRAVENOUS IMMUNOGLOBULIN) [Suspect]
     Active Substance: HUMAN IMMUNOGLOBULIN G

REACTIONS (10)
  - Malaise [None]
  - Ulcer haemorrhage [None]
  - Substance-induced psychotic disorder [None]
  - Urinary tract infection [None]
  - Abasia [None]
  - Loss of consciousness [None]
  - Aphasia [None]
  - Headache [None]
  - Sepsis [None]
  - Multiple sclerosis [None]
